FAERS Safety Report 5050845-2 (Version None)
Quarter: 2006Q3

REPORT INFORMATION
  Report Type: 
  Country: None (occurrence: None)
  Receive Date: 20060710
  Receipt Date: 20060628
  Transmission Date: 20061208
  Serious: Yes (Other)
  Sender: FDA-Public Use
  Company Number: B0429994A

PATIENT
  Age: 41 Year
  Sex: Female

DRUGS (2)
  1. PAXIL [Suspect]
     Dosage: PER DAY/ORAL
     Route: 048
  2. DIAZEPAM [Suspect]

REACTIONS (2)
  - OVERDOSE [None]
  - SUICIDE ATTEMPT [None]
